FAERS Safety Report 12945775 (Version 2)
Quarter: 2016Q4

REPORT INFORMATION
  Report Type: Spontaneous
  Country: IT (occurrence: IT)
  Receive Date: 20161115
  Receipt Date: 20161205
  Transmission Date: 20170207
  Serious: Yes (Hospitalization)
  Sender: FDA-Public Use
  Company Number: IT-BAUSCH-BL-2016-027546

PATIENT
  Age: 52 Year
  Sex: Female
  Weight: 70 kg

DRUGS (1)
  1. NORMIX 200 MG COMPRESSE RIVESTITE CON FILM [Suspect]
     Active Substance: RIFAXIMIN
     Indication: GASTROENTERITIS
     Dosage: 6 DOSAGE UNIT/DAY
     Route: 048
     Dates: start: 20161017, end: 20161028

REACTIONS (4)
  - Abdominal pain [Recovered/Resolved with Sequelae]
  - Flatulence [Recovered/Resolved with Sequelae]
  - Nausea [Recovered/Resolved with Sequelae]
  - Constipation [Recovered/Resolved with Sequelae]

NARRATIVE: CASE EVENT DATE: 20161024
